FAERS Safety Report 7222082-4 (Version None)
Quarter: 2011Q1

REPORT INFORMATION
  Report Type: 
  Country: None (occurrence: None)
  Receive Date: 20110112
  Receipt Date: 20110104
  Transmission Date: 20110831
  Serious: Yes (Other)
  Sender: FDA-Public Use
  Company Number: US-JNJFOC-20101101085

PATIENT
  Sex: Female

DRUGS (3)
  1. INVEGA [Suspect]
     Indication: BIPOLAR I DISORDER
     Route: 048
  2. INVEGA SUSTENNA [Suspect]
     Indication: BIPOLAR I DISORDER
     Route: 030
  3. INVEGA SUSTENNA [Suspect]
     Route: 030

REACTIONS (4)
  - EXTRAPYRAMIDAL DISORDER [None]
  - HYPERTENSION [None]
  - HEART RATE INCREASED [None]
  - BODY TEMPERATURE INCREASED [None]
